FAERS Safety Report 4833730-8 (Version None)
Quarter: 2005Q4

REPORT INFORMATION
  Report Type: 
  Country: None (occurrence: None)
  Receive Date: 20051115
  Receipt Date: 20051115
  Transmission Date: 20060501
  Serious: No
  Sender: FDA-Public Use
  Company Number: 2005S1010783

PATIENT
  Age: 24 Year

DRUGS (3)
  1. GABITRIL [Suspect]
  2. DIAZEPAM [Suspect]
  3. SERTRALINE HCL [Suspect]

REACTIONS (4)
  - CARDIAC ARREST [None]
  - COMPLETED SUICIDE [None]
  - MULTIPLE DRUG OVERDOSE INTENTIONAL [None]
  - RESPIRATORY ARREST [None]
